FAERS Safety Report 12787997 (Version 1)
Quarter: 2016Q3

REPORT INFORMATION
  Report Type: Spontaneous
  Country: GB (occurrence: GB)
  Receive Date: 20160928
  Receipt Date: 20160928
  Transmission Date: 20161109
  Serious: Yes (Other)
  Sender: FDA-Public Use
  Company Number: GB-009507513-1609GBR013193

PATIENT
  Age: 63 Year
  Sex: Female
  Weight: 66.67 kg

DRUGS (2)
  1. CLOPIDOGREL [Concomitant]
     Active Substance: CLOPIDOGREL BISULFATE
  2. EZETROL [Suspect]
     Active Substance: EZETIMIBE
     Indication: THROMBOSIS
     Dosage: 10 MG, UNK
     Route: 048
     Dates: start: 20130830, end: 20160913

REACTIONS (2)
  - Myalgia [Recovered/Resolved with Sequelae]
  - Muscular weakness [Unknown]

NARRATIVE: CASE EVENT DATE: 20150504
